FAERS Safety Report 7912925-0 (Version None)
Quarter: 2011Q4

REPORT INFORMATION
  Report Type: 
  Country: None (occurrence: None)
  Receive Date: 20111114
  Receipt Date: 20111111
  Transmission Date: 20120403
  Serious: No
  Sender: FDA-Public Use
  Company Number: US-PFIZER INC-2011277314

PATIENT
  Sex: Male
  Weight: 131 kg

DRUGS (12)
  1. VITAMIN B COMPLEX CAP [Concomitant]
     Dosage: UNK
  2. ACETAMINOPHEN [Suspect]
     Indication: ARTHRALGIA
  3. ACETAMINOPHEN [Suspect]
     Indication: MYALGIA
  4. GLUCOTROL [Concomitant]
     Indication: DIABETES MELLITUS
     Dosage: 10 MG,DAILY
  5. ACETAMINOPHEN [Suspect]
     Indication: MUSCLE TIGHTNESS
     Dosage: 500 MG, UNK
     Dates: start: 20111110, end: 20111111
  6. LANTUS [Concomitant]
     Indication: DIABETES MELLITUS
     Dosage: 50 IU, DAILY
  7. ACETYLSALICYLIC ACID [Concomitant]
     Dosage: 81 MG,DAILY
  8. SENSIPAR [Concomitant]
     Indication: RENAL FAILURE
     Dosage: 60 MG, DAILY
  9. ASCORBIC ACID [Concomitant]
     Dosage: UNK
  10. LIPITOR [Suspect]
     Indication: BLOOD CHOLESTEROL INCREASED
     Dosage: 40 MG, DAILY
     Dates: end: 20111107
  11. GABAPENTIN [Concomitant]
     Dosage: 300 MG, DAILY
  12. NIACIN [Concomitant]
     Dosage: UNK

REACTIONS (5)
  - MYALGIA [None]
  - MUSCLE TIGHTNESS [None]
  - DRUG INEFFECTIVE [None]
  - BLOOD CHOLESTEROL DECREASED [None]
  - ARTHRALGIA [None]
